FAERS Safety Report 14788549 (Version 1)
Quarter: 2018Q2

REPORT INFORMATION
  Report Type: Spontaneous
  Country: US (occurrence: US)
  Receive Date: 20180423
  Receipt Date: 20180423
  Transmission Date: 20180711
  Serious: Yes (Other)
  Sender: FDA-Public Use
  Company Number: US-JNJFOC-20180414160

PATIENT
  Age: 51 Year
  Sex: Female
  Weight: 103.42 kg

DRUGS (2)
  1. INVOKANA [Suspect]
     Active Substance: CANAGLIFLOZIN
     Indication: TYPE 2 DIABETES MELLITUS
     Route: 048
     Dates: start: 20150105, end: 20151118
  2. INVOKAMET [Suspect]
     Active Substance: CANAGLIFLOZIN\METFORMIN HYDROCHLORIDE
     Indication: TYPE 2 DIABETES MELLITUS
     Dosage: 50/500MG
     Route: 048
     Dates: start: 20141223, end: 20141229

REACTIONS (3)
  - Glomerular filtration rate decreased [Unknown]
  - Hypotension [Unknown]
  - Toe amputation [Unknown]

NARRATIVE: CASE EVENT DATE: 20151118
